FAERS Safety Report 25210015 (Version 5)
Quarter: 2025Q2

REPORT INFORMATION
  Report Type: Spontaneous
  Country: AT (occurrence: AT)
  Receive Date: 20250417
  Receipt Date: 20250515
  Transmission Date: 20250717
  Serious: Yes (Hospitalization, Other)
  Sender: NOVARTIS
  Company Number: AT-002147023-NVSC2025AT061772

PATIENT
  Sex: Female

DRUGS (6)
  1. LETROZOLE [Suspect]
     Active Substance: LETROZOLE
     Indication: Breast cancer
     Dosage: 1 MG, QD
     Route: 048
     Dates: start: 20230614
  2. PALBOCICLIB [Concomitant]
     Active Substance: PALBOCICLIB
     Indication: Breast cancer
     Dosage: 125 MG, QD ( DAY 1 TO DAY 21 EVERY 28-DAY CYCLE)
     Route: 048
     Dates: start: 20230614, end: 20230704
  3. PALBOCICLIB [Concomitant]
     Active Substance: PALBOCICLIB
     Route: 048
     Dates: start: 20230718, end: 20230807
  4. PALBOCICLIB [Concomitant]
     Active Substance: PALBOCICLIB
     Dosage: 75 MG, QD ( DAY 1 TO DAY 21 EVERY 28-DAY CYCLE)
     Route: 048
     Dates: start: 20230815
  5. PROLIA [Concomitant]
     Active Substance: DENOSUMAB
     Indication: Osteopenia
     Route: 058
     Dates: start: 20230627
  6. ASCORBIC ACID\CALCIUM PHOSPHATE\CHOLECALCIFEROL\CITRIC ACID MONOHYDRAT [Concomitant]
     Active Substance: ASCORBIC ACID\CALCIUM PHOSPHATE\CHOLECALCIFEROL\CITRIC ACID MONOHYDRATE
     Indication: Osteopenia
     Route: 048
     Dates: start: 20230627

REACTIONS (1)
  - Atrial fibrillation [Recovering/Resolving]

NARRATIVE: CASE EVENT DATE: 20250117
